FAERS Safety Report 8847870 (Version 2)
Quarter: 2013Q2

REPORT INFORMATION
  Report Type: Spontaneous
  Country: US (occurrence: US)
  Receive Date: 20121018
  Receipt Date: 20130528
  Transmission Date: 20140414
  Serious: Yes (Hospitalization, Other)
  Sender: FDA-Public Use
  Company Number: US-BAYER-2012-106750

PATIENT
  Age: 85 Year
  Sex: Female
  Weight: 62 kg

DRUGS (4)
  1. ALKA-SELTZER HEARTBURN [Suspect]
     Indication: FOOD ALLERGY
     Dosage: 2 DF BID
     Route: 048
     Dates: start: 2002, end: 20121006
  2. ALKA-SELTZER HEARTBURN [Suspect]
     Indication: FOOD ALLERGY
     Dosage: 2 TABLETS ONCE OR TWICE DAILY
     Route: 048
     Dates: start: 2002, end: 20121006
  3. VASOTEC [ENALAPRILAT] [Concomitant]
  4. ALDOMET [METHYLDOPA] [Concomitant]

REACTIONS (15)
  - Hypertension [Recovering/Resolving]
  - Tachycardia [Recovering/Resolving]
  - Dermatitis allergic [Recovering/Resolving]
  - Myalgia [Recovering/Resolving]
  - Muscle swelling [Recovering/Resolving]
  - Vision blurred [Recovered/Resolved]
  - Visual acuity reduced [Recovered/Resolved]
  - Eye pain [Recovered/Resolved]
  - Abnormal sensation in eye [Recovered/Resolved]
  - Dry skin [Recovered/Resolved]
  - Skin exfoliation [Recovered/Resolved]
  - Tinnitus [Recovered/Resolved]
  - Off label use [None]
  - Migraine [None]
  - Dizziness [None]
